FAERS Safety Report 14742916 (Version 1)
Quarter: 2018Q2

REPORT INFORMATION
  Report Type: Spontaneous
  Country: CN (occurrence: CN)
  Receive Date: 20180410
  Receipt Date: 20180410
  Transmission Date: 20180711
  Serious: Yes (Other)
  Sender: FDA-Public Use
  Company Number: CN-FRESENIUS KABI-FK201804204

PATIENT
  Age: 80 Year
  Sex: Male

DRUGS (2)
  1. LIPOVENOES MCT 20% [Suspect]
     Active Substance: EGG PHOSPHOLIPIDS\GLYCERIN\MEDIUM-CHAIN TRIGLYCERIDES\SOYBEAN OIL
     Indication: SPINAL OSTEOARTHRITIS
     Route: 041
     Dates: start: 20180123, end: 20180123
  2. FAT-SOLUBLE VITAMIN [Suspect]
     Active Substance: VITAMINS
     Indication: SPINAL OSTEOARTHRITIS
     Route: 041
     Dates: start: 20180123, end: 20180123

REACTIONS (2)
  - Chills [Recovered/Resolved]
  - Temperature intolerance [Recovered/Resolved]

NARRATIVE: CASE EVENT DATE: 20180123
